FAERS Safety Report 5164935-7 (Version None)
Quarter: 2006Q4

REPORT INFORMATION
  Report Type: 
  Country: None (occurrence: None)
  Receive Date: 20061124
  Receipt Date: 20061113
  Transmission Date: 20070319
  Serious: Yes (Death)
  Sender: FDA-Public Use
  Company Number: 2006024518

PATIENT

DRUGS (1)
  1. MYLANTA PLUS (MAGNESIUM HYDROXIDE, ALUMINIUM HYDROXIDE, SIMETHICONE) [Suspect]
     Indication: DRUG EXPOSURE DURING PREGNANCY
     Dosage: 10 ML 3X DAILY, PLACENTAL
     Dates: start: 20060210, end: 20060201

REACTIONS (2)
  - ABORTION [None]
  - DRUG EXPOSURE DURING PREGNANCY [None]
